FAERS Safety Report 16252540 (Version 7)
Quarter: 2021Q3

REPORT INFORMATION
  Report Type: Spontaneous
  Country: CA (occurrence: CA)
  Receive Date: 20190429
  Receipt Date: 20210728
  Transmission Date: 20211014
  Serious: Yes (Other)
  Sender: FDA-Public Use
  Company Number: CA-PFIZER INC-2016518419

PATIENT
  Age: 54 Year
  Sex: Female

DRUGS (7)
  1. SOMAVERT [Suspect]
     Active Substance: PEGVISOMANT
     Dosage: 20 MG, DAILY
     Route: 058
     Dates: start: 2016
  2. SOMAVERT [Suspect]
     Active Substance: PEGVISOMANT
     Dosage: 25 MG, DAILY
     Route: 058
  3. SOMAVERT [Suspect]
     Active Substance: PEGVISOMANT
     Indication: ACROMEGALY
     Dosage: 15 MG, DAILY
     Route: 058
     Dates: start: 20150805, end: 2016
  4. SOMATULINE [Concomitant]
     Active Substance: LANREOTIDE ACETATE
     Dosage: 120 MG, MONTHLY
  5. ADVIL [Concomitant]
     Active Substance: IBUPROFEN
     Indication: HEADACHE
     Dosage: 200MG?400MG PRN (AS NEEDED)
     Route: 048
  6. VAGIFEM [Concomitant]
     Active Substance: ESTRADIOL
     Dosage: 10, 2X/WEEK
  7. ADVIL [Concomitant]
     Active Substance: IBUPROFEN
     Indication: ARTHRALGIA

REACTIONS (7)
  - Hernia [Unknown]
  - Arthropathy [Unknown]
  - Hepatic enzyme abnormal [Recovered/Resolved]
  - Therapeutic product effect incomplete [Recovered/Resolved]
  - Arthritis [Not Recovered/Not Resolved]
  - Synovial cyst [Unknown]
  - Blood growth hormone increased [Recovered/Resolved]

NARRATIVE: CASE EVENT DATE: 2016
